FAERS Safety Report 8069824-6 (Version None)
Quarter: 2012Q1

REPORT INFORMATION
  Report Type: 
  Country: None (occurrence: None)
  Receive Date: 20120125
  Receipt Date: 20120125
  Transmission Date: 20120608
  Serious: Yes (Other)
  Sender: FDA-Public Use
  Company Number: None

PATIENT
  Sex: Female
  Weight: 89.811 kg

DRUGS (1)
  1. CYMBALTA [Suspect]
     Indication: PAIN IN EXTREMITY
     Dosage: 60.0 MG
     Route: 048
     Dates: start: 20080407, end: 20120124

REACTIONS (5)
  - DRUG DEPENDENCE [None]
  - URINE ODOUR ABNORMAL [None]
  - PARAESTHESIA [None]
  - DRUG WITHDRAWAL SYNDROME [None]
  - ACCIDENT AT WORK [None]
